FAERS Safety Report 23803423 (Version 1)
Quarter: 2024Q2

REPORT INFORMATION
  Report Type: Spontaneous
  Country: US (occurrence: None)
  Receive Date: 20240501
  Receipt Date: 20240501
  Transmission Date: 20240717
  Serious: No
  Sender: FDA-Public Use
  Company Number: US-Axsome Therapeutics, Inc.-AXS202308-001096

PATIENT
  Age: 27 Year
  Sex: Female

DRUGS (7)
  1. SUNOSI [Suspect]
     Active Substance: SOLRIAMFETOL
     Indication: Somnolence
     Route: 065
     Dates: start: 20230504
  2. XYREM [Concomitant]
     Active Substance: SODIUM OXYBATE
     Indication: Narcolepsy
     Dosage: UNK
     Route: 048
     Dates: start: 20230728, end: 20230804
  3. XYREM [Concomitant]
     Active Substance: SODIUM OXYBATE
     Indication: Somnolence
     Route: 048
  4. GABAPENTIN [Concomitant]
     Active Substance: GABAPENTIN
     Route: 065
     Dates: start: 20220106
  5. CANNABIS SATIVA SUBSP. INDICA TOP [Concomitant]
     Active Substance: CANNABIS SATIVA SUBSP. INDICA TOP
     Route: 065
     Dates: start: 20230101
  6. TRAZODONE [Concomitant]
     Active Substance: TRAZODONE HYDROCHLORIDE
     Route: 065
     Dates: start: 20230803
  7. PRAZOSIN [Concomitant]
     Active Substance: PRAZOSIN
     Route: 065
     Dates: start: 20230803

REACTIONS (11)
  - Heart rate abnormal [Unknown]
  - Crying [Unknown]
  - COVID-19 [Unknown]
  - Tachycardia [Unknown]
  - Blood pressure increased [Unknown]
  - Panic attack [Unknown]
  - Anxiety [Unknown]
  - Chest pain [Unknown]
  - Chest discomfort [Unknown]
  - Dyspnoea [Recovered/Resolved]
  - Drug effect less than expected [Unknown]

NARRATIVE: CASE EVENT DATE: 20230801
